FAERS Safety Report 6202139-7 (Version None)
Quarter: 2009Q2

REPORT INFORMATION
  Report Type: 
  Country: None (occurrence: None)
  Receive Date: 20090520
  Receipt Date: 20090508
  Transmission Date: 20091009
  Serious: Yes (Other)
  Sender: FDA-Public Use
  Company Number: 235206K09USA

PATIENT
  Age: 34 Year
  Sex: Female

DRUGS (2)
  1. REBIF [Suspect]
     Indication: MULTIPLE SCLEROSIS
     Dosage: 44 MCG, 3 IN 1 WEEKS, SUBCUTANEOUS
     Route: 058
     Dates: start: 20080909
  2. UNSPECIFIED ANTIDEPRESSANT (ANTIDEPRESSANTS) [Concomitant]

REACTIONS (5)
  - CHILLS [None]
  - CONVULSION [None]
  - FEELING COLD [None]
  - HYPERHIDROSIS [None]
  - PRESYNCOPE [None]
